FAERS Safety Report 6835168-0 (Version None)
Quarter: 2010Q3

REPORT INFORMATION
  Report Type: 
  Country: None (occurrence: None)
  Receive Date: 20100713
  Receipt Date: 20091006
  Transmission Date: 20110219
  Serious: No
  Sender: FDA-Public Use
  Company Number: 2009BI004515

PATIENT
  Age: 61 Year
  Sex: Female

DRUGS (1)
  1. TYSABRI [Suspect]
     Indication: MULTIPLE SCLEROSIS
     Route: 042
     Dates: start: 20081205

REACTIONS (28)
  - BACK PAIN [None]
  - BLINDNESS UNILATERAL [None]
  - COUGH [None]
  - DIZZINESS [None]
  - DYSGRAPHIA [None]
  - DYSPNOEA [None]
  - FALL [None]
  - FATIGUE [None]
  - FEELING HOT [None]
  - GAIT DISTURBANCE [None]
  - GENERAL PHYSICAL HEALTH DETERIORATION [None]
  - HEAD INJURY [None]
  - INFECTION [None]
  - JOINT INJURY [None]
  - KIDNEY INFECTION [None]
  - LIP SWELLING [None]
  - LOSS OF CONSCIOUSNESS [None]
  - MEMORY IMPAIRMENT [None]
  - NUCLEAR MAGNETIC RESONANCE IMAGING ABNORMAL [None]
  - PARAESTHESIA ORAL [None]
  - PNEUMONIA PRIMARY ATYPICAL [None]
  - POLLAKIURIA [None]
  - SINUSITIS [None]
  - SKELETAL INJURY [None]
  - STOMATITIS [None]
  - UHTHOFF'S PHENOMENON [None]
  - URINARY TRACT INFECTION [None]
  - VISUAL IMPAIRMENT [None]
